FAERS Safety Report 10022991 (Version 2)
Quarter: 2016Q1

REPORT INFORMATION
  Report Type: Spontaneous
  Country: US (occurrence: US)
  Receive Date: 20140319
  Receipt Date: 20160322
  Transmission Date: 20160525
  Serious: No
  Sender: FDA-Public Use
  Company Number: US-SA-2013SA121721

PATIENT
  Age: 67 Year
  Sex: Female

DRUGS (1)
  1. LEUKINE [Suspect]
     Active Substance: SARGRAMOSTIM
     Indication: IMMUNOMODULATORY THERAPY
     Dosage: 250 MCG STRENGTH
     Route: 065
     Dates: start: 20130925

REACTIONS (4)
  - Injection site swelling [Unknown]
  - Injection site erythema [Unknown]
  - Injection site discomfort [Unknown]
  - Drug intolerance [Not Recovered/Not Resolved]
